FAERS Safety Report 4785917-0 (Version None)
Quarter: 2005Q4

REPORT INFORMATION
  Report Type: 
  Country: None (occurrence: None)
  Receive Date: 20051003
  Receipt Date: 20050926
  Transmission Date: 20060501
  Serious: Yes (Hospitalization)
  Sender: FDA-Public Use
  Company Number: PHRM2005FR02552

PATIENT
  Age: 80 Year
  Sex: Male

DRUGS (4)
  1. CLERIDIUM [Suspect]
     Dosage: 150 MG, BID
     Route: 048
     Dates: end: 20050810
  2. OXACILLIN [Concomitant]
     Dosage: 1 G, QD
     Dates: start: 20050620, end: 20050626
  3. TAREG [Suspect]
     Indication: HYPERTENSION
     Dosage: 80 MG, QD
     Route: 048
     Dates: start: 20050615, end: 20050815
  4. TAREG [Suspect]
     Dosage: 40 MG, QD
     Route: 048
     Dates: end: 20050615

REACTIONS (3)
  - MUCOSAL HAEMORRHAGE [None]
  - ORAL MUCOSAL PETECHIAE [None]
  - THROMBOCYTOPENIA [None]
